FAERS Safety Report 4698093-X (Version None)
Quarter: 2005Q2

REPORT INFORMATION
  Report Type: 
  Country: None (occurrence: None)
  Receive Date: 20050623
  Receipt Date: 20050620
  Transmission Date: 20051028
  Serious: Yes (Hospitalization, Other)
  Sender: FDA-Public Use
  Company Number: PHNU2005DE02323

PATIENT
  Sex: Male

DRUGS (2)
  1. RITALIN-SR [Suspect]
     Dosage: 20 MG/DAY
     Route: 048
     Dates: end: 20050201
  2. RITALIN-SR [Suspect]
     Dosage: 400 MG, ONCE/SINGLE
     Route: 048
     Dates: start: 20050201, end: 20050201

REACTIONS (2)
  - OVERDOSE [None]
  - POISONING [None]
